FAERS Safety Report 13451824 (Version 2)
Quarter: 2017Q3

REPORT INFORMATION
  Report Type: Spontaneous
  Country: PT (occurrence: PT)
  Receive Date: 20170418
  Receipt Date: 20170823
  Transmission Date: 20171127
  Serious: Yes (Other)
  Sender: FDA-Public Use
  Company Number: PT-BEH-2017079669

PATIENT
  Age: 7 Year
  Sex: Female

DRUGS (6)
  1. HUMAN IMMUNOGLOBULIN (NC) [Suspect]
     Active Substance: HUMAN IMMUNOGLOBULIN G
     Indication: RADICULOPATHY
     Dosage: HIGH-DOSAGE
     Route: 042
  2. METHYLPREDNISOLONE. [Suspect]
     Active Substance: METHYLPREDNISOLONE
     Indication: HERPES VIRUS INFECTION
  3. CEFTRIAXONE. [Concomitant]
     Active Substance: CEFTRIAXONE
     Route: 065
  4. HUMAN IMMUNOGLOBULIN (NC) [Suspect]
     Active Substance: HUMAN IMMUNOGLOBULIN G
     Indication: HERPES VIRUS INFECTION
  5. METHYLPREDNISOLONE. [Suspect]
     Active Substance: METHYLPREDNISOLONE
     Indication: RADICULOPATHY
     Route: 065
  6. CIPROFLOXACIN. [Concomitant]
     Active Substance: CIPROFLOXACIN

REACTIONS (6)
  - Vomiting [Unknown]
  - Meningeal disorder [Unknown]
  - Headache [Unknown]
  - Intracranial venous sinus thrombosis [Unknown]
  - Photophobia [Unknown]
  - Cerebral haemorrhage [Unknown]
